FAERS Safety Report 18531591 (Version 1)
Quarter: 2020Q4

REPORT INFORMATION
  Report Type: Spontaneous
  Country: CN (occurrence: CN)
  Receive Date: 20201123
  Receipt Date: 20201123
  Transmission Date: 20210114
  Serious: Yes (Other)
  Sender: FDA-Public Use
  Company Number: CN-ROCHE-2717539

PATIENT
  Age: 68 Year
  Sex: Male
  Weight: 77 kg

DRUGS (13)
  1. ETOPOSIDE. [Suspect]
     Active Substance: ETOPOSIDE
     Indication: LUNG NEOPLASM MALIGNANT
     Dosage: ON DAY 1,DAY 2 AND DAY 3
     Route: 065
     Dates: start: 20200515
  2. TECENTRIQ [Suspect]
     Active Substance: ATEZOLIZUMAB
     Route: 041
     Dates: start: 20200727
  3. CARBOPLATIN. [Suspect]
     Active Substance: CARBOPLATIN
     Dosage: AUC 5, DAY1
     Route: 065
     Dates: start: 20200727
  4. CARBOPLATIN. [Suspect]
     Active Substance: CARBOPLATIN
     Dosage: AUC 5, DAY1
     Route: 065
     Dates: start: 20200704
  5. ETOPOSIDE. [Suspect]
     Active Substance: ETOPOSIDE
     Indication: BRAIN NEOPLASM
     Dosage: ON DAY 1,DAY 2 AND DAY 3
     Route: 065
     Dates: start: 20200607
  6. ETOPOSIDE. [Suspect]
     Active Substance: ETOPOSIDE
     Dosage: , ON DAY 1,DAY 2 AND DAY 3
     Route: 065
     Dates: start: 20200704
  7. TECENTRIQ [Suspect]
     Active Substance: ATEZOLIZUMAB
     Indication: LUNG NEOPLASM MALIGNANT
     Route: 041
     Dates: start: 20200515
  8. TECENTRIQ [Suspect]
     Active Substance: ATEZOLIZUMAB
     Indication: BRAIN NEOPLASM
     Route: 042
     Dates: start: 20200607
  9. TECENTRIQ [Suspect]
     Active Substance: ATEZOLIZUMAB
     Route: 041
     Dates: start: 20200704
  10. TECENTRIQ [Suspect]
     Active Substance: ATEZOLIZUMAB
     Route: 041
     Dates: start: 20200822
  11. CARBOPLATIN. [Suspect]
     Active Substance: CARBOPLATIN
     Indication: LUNG NEOPLASM MALIGNANT
     Dosage: AUC 5, DAY1
     Route: 065
     Dates: start: 20200515
  12. CARBOPLATIN. [Suspect]
     Active Substance: CARBOPLATIN
     Indication: BRAIN NEOPLASM
     Dosage: AUC 5, DAY1
     Route: 065
     Dates: start: 20200607
  13. ETOPOSIDE. [Suspect]
     Active Substance: ETOPOSIDE
     Dosage: , ON DAY 1,DAY 2 AND DAY 3
     Route: 065
     Dates: start: 20200727

REACTIONS (1)
  - Myelosuppression [Unknown]
